FAERS Safety Report 9734772 (Version 1)
Quarter: 2013Q4

REPORT INFORMATION
  Report Type: Report from Study
  Country: CA (occurrence: CA)
  Receive Date: 20131206
  Receipt Date: 20131206
  Transmission Date: 20140711
  Serious: Yes (Other)
  Sender: FDA-Public Use
  Company Number: CA-JNJFOC-20131118624

PATIENT
  Age: 46 Year
  Sex: Female

DRUGS (4)
  1. REMICADE [Suspect]
     Indication: CROHN^S DISEASE
     Dosage: 300 MG/400MG ALTERNATING
     Route: 042
     Dates: start: 200602
  2. GRAVOL [Concomitant]
     Route: 065
  3. OXYCODONE [Concomitant]
     Route: 065
  4. TRAMACET [Concomitant]
     Dosage: PRN
     Route: 065

REACTIONS (1)
  - Lower extremity mass [Unknown]
